FAERS Safety Report 4837064-7 (Version None)
Quarter: 2005Q4

REPORT INFORMATION
  Report Type: 
  Country: None (occurrence: None)
  Receive Date: 20051121
  Receipt Date: 20051121
  Transmission Date: 20060501
  Serious: Yes (Hospitalization, Other)
  Sender: FDA-Public Use
  Company Number: None

PATIENT
  Age: 36 Year
  Sex: Female
  Weight: 101.8 kg

DRUGS (17)
  1. DAPTOMYCIN (CUBIST) [Suspect]
     Indication: DERMATOFIBROSARCOMA
     Dosage: 600 MG Q48 HOURS IV
     Route: 042
     Dates: start: 20050927, end: 20051008
  2. DAPTOMYCIN (CUBIST) [Suspect]
     Indication: MALIGNANT TUMOUR EXCISION
     Dosage: 600 MG Q48 HOURS IV
     Route: 042
     Dates: start: 20050927, end: 20051008
  3. DAPTOMYCIN (CUBIST) [Suspect]
     Indication: POSTOPERATIVE WOUND INFECTION
     Dosage: 600 MG Q48 HOURS IV
     Route: 042
     Dates: start: 20050927, end: 20051008
  4. DAPTOMYCIN (CUBIST) [Suspect]
  5. HYDROXYZINE [Concomitant]
  6. LEXAPRO [Concomitant]
  7. TRAZODONE [Concomitant]
  8. SENNA [Concomitant]
  9. PANTOPRAZOLE [Concomitant]
  10. IRON [Concomitant]
  11. HEPARIN [Concomitant]
  12. FUROSEMIDE [Concomitant]
  13. DOCUSATE [Concomitant]
  14. CALCIUM GLUCONATE [Concomitant]
  15. VITAMIN B COMPLEX CAP [Concomitant]
  16. CIPRO [Concomitant]
  17. LEVOFLOXACIN [Concomitant]

REACTIONS (3)
  - EOSINOPHIL COUNT INCREASED [None]
  - HAEMODIALYSIS [None]
  - RASH [None]
